FAERS Safety Report 4971994-0 (Version None)
Quarter: 2006Q2

REPORT INFORMATION
  Report Type: 
  Country: None (occurrence: None)
  Receive Date: 20060407
  Receipt Date: 20060328
  Transmission Date: 20061013
  Serious: Yes (Other)
  Sender: FDA-Public Use
  Company Number: 2006042904

PATIENT
  Sex: Female

DRUGS (1)
  1. LIPITOR [Suspect]
     Indication: ILL-DEFINED DISORDER
     Dates: start: 20060301

REACTIONS (4)
  - FIBROCYSTIC BREAST DISEASE [None]
  - ORAL SURGERY [None]
  - RHINORRHOEA [None]
  - VISUAL ACUITY REDUCED [None]
